APPROVED DRUG PRODUCT: CYSTAGON
Active Ingredient: CYSTEAMINE BITARTRATE
Strength: EQ 50MG BASE
Dosage Form/Route: CAPSULE;ORAL
Application: N020392 | Product #001
Applicant: MYLAN PHARMACEUTICALS INC
Approved: Aug 15, 1994 | RLD: Yes | RS: No | Type: RX